FAERS Safety Report 11741333 (Version 3)
Quarter: 2016Q1

REPORT INFORMATION
  Report Type: Spontaneous
  Country: US (occurrence: US)
  Receive Date: 20151116
  Receipt Date: 20160107
  Transmission Date: 20160525
  Serious: No
  Sender: FDA-Public Use
  Company Number: PHEH2014US010498

PATIENT
  Sex: Female

DRUGS (6)
  1. ESTRADIOL. [Suspect]
     Active Substance: ESTRADIOL
     Indication: PRODUCT USED FOR UNKNOWN INDICATION
     Dosage: 0.037 OT, UNK
     Route: 062
  2. SYNTHROID [Concomitant]
     Active Substance: LEVOTHYROXINE SODIUM
     Dosage: 88 UG, UNK
  3. MULTIVITAMIN [Concomitant]
     Active Substance: VITAMINS
     Dosage: UNK UKN, UNK
  4. VIVELLE-DOT [Suspect]
     Active Substance: ESTRADIOL
     Indication: HORMONE REPLACEMENT THERAPY
     Dosage: 0.025 MG, BIW
     Route: 062
  5. VITAMIN B [Concomitant]
     Active Substance: VITAMIN B
     Dosage: UNK UKN, UNK
  6. VITAMIN C [Concomitant]
     Active Substance: ASCORBIC ACID
     Dosage: UNK UKN, UNK

REACTIONS (3)
  - Product adhesion issue [Unknown]
  - Hot flush [Unknown]
  - Drug ineffective [Unknown]
